FAERS Safety Report 18311626 (Version 1)
Quarter: 2020Q3

REPORT INFORMATION
  Report Type: Spontaneous
  Country: US (occurrence: US)
  Receive Date: 20200925
  Receipt Date: 20200925
  Transmission Date: 20201103
  Serious: Yes (Hospitalization)
  Sender: FDA-Public Use
  Company Number: US-MYLANLABS-2020M1080735

PATIENT
  Age: 60 Year
  Sex: Male

DRUGS (9)
  1. EPTIFIBATIDE. [Suspect]
     Active Substance: EPTIFIBATIDE
     Dosage: 2 MICROGRAM/KILOGRAM, QMINUTE ADMINISTERED..
     Route: 042
  2. EPTIFIBATIDE. [Suspect]
     Active Substance: EPTIFIBATIDE
     Indication: ANTIPLATELET THERAPY
     Dosage: 180 MICROGRAM/KILOGRAM
     Route: 040
  3. CEFEPIME [Concomitant]
     Active Substance: CEFEPIME HYDROCHLORIDE
     Indication: PNEUMONIA
     Dosage: UNK
     Route: 065
  4. HEPARIN [Concomitant]
     Active Substance: HEPARIN SODIUM
     Dosage: 4000 INTERNATIONAL UNIT
     Route: 042
  5. VANCOMYCIN [Concomitant]
     Active Substance: VANCOMYCIN
     Indication: PNEUMONIA
     Dosage: UNK
     Route: 065
  6. CEFTRIAXONE. [Concomitant]
     Active Substance: CEFTRIAXONE
     Indication: PNEUMONIA
     Dosage: UNK
     Route: 065
  7. HEPARIN [Concomitant]
     Active Substance: HEPARIN SODIUM
     Indication: ANTIPLATELET THERAPY
     Dosage: 4800 INTERNATIONAL UNIT
     Route: 042
  8. ASPIRIN                            /00002701/ [Concomitant]
     Active Substance: ASPIRIN
     Indication: ANTIPLATELET THERAPY
     Dosage: 300 MILLIGRAM
     Route: 054
  9. TICAGRELOR. [Concomitant]
     Active Substance: TICAGRELOR
     Indication: ANTIPLATELET THERAPY
     Dosage: 180 MILLIGRAMADMINISTERED THRO..
     Route: 065

REACTIONS (3)
  - Immune thrombocytopenia [Recovered/Resolved]
  - Cardiac ventricular thrombosis [Recovered/Resolved]
  - Deep vein thrombosis [Recovered/Resolved]
